FAERS Safety Report 19403435 (Version 1)
Quarter: 2021Q2

REPORT INFORMATION
  Report Type: Spontaneous
  Country: US (occurrence: US)
  Receive Date: 20210610
  Receipt Date: 20210610
  Transmission Date: 20210717
  Serious: Yes (Hospitalization)
  Sender: FDA-Public Use
  Company Number: US-ROCHE-1448132

PATIENT
  Sex: Male
  Weight: 82.17 kg

DRUGS (9)
  1. KLONOPIN [Suspect]
     Active Substance: CLONAZEPAM
     Indication: IDIOPATHIC URTICARIA
     Route: 065
  2. BENADRYL ALLERGY [Concomitant]
     Active Substance: DIPHENHYDRAMINE HYDROCHLORIDE
     Dosage: AS NEEDED
     Route: 048
  3. ZYRTEC [Concomitant]
     Active Substance: CETIRIZINE HYDROCHLORIDE
     Dosage: AS NEEDED
     Route: 048
  4. SINGULAIR [Concomitant]
     Active Substance: MONTELUKAST SODIUM
     Dosage: IN THE EVENING
     Route: 048
  5. CETRIZINE [Concomitant]
     Active Substance: CETIRIZINE HYDROCHLORIDE
     Dosage: QAM
     Route: 048
  6. HYDROXYZINE HYDROCHLORIDE. [Concomitant]
     Active Substance: HYDROXYZINE HYDROCHLORIDE
     Dosage: FREQUENCY: EVERY NIGHT DURING BED TIME
     Route: 048
  7. LAMICTAL [Concomitant]
     Active Substance: LAMOTRIGINE
     Route: 048
  8. CELEBREX [Concomitant]
     Active Substance: CELECOXIB
  9. RANITIDINE HCL [Concomitant]
     Active Substance: RANITIDINE HYDROCHLORIDE
     Route: 048

REACTIONS (4)
  - Urticaria [Unknown]
  - Angioedema [Unknown]
  - Dyspepsia [Unknown]
  - Pruritus [Unknown]
